FAERS Safety Report 7324195-5 (Version None)
Quarter: 2011Q1

REPORT INFORMATION
  Report Type: 
  Country: None (occurrence: None)
  Receive Date: 20110202
  Receipt Date: 20101012
  Transmission Date: 20110831
  Serious: No
  Sender: FDA-Public Use
  Company Number: 2010-13585

PATIENT
  Age: 73 Year
  Sex: Male
  Weight: 113.4 kg

DRUGS (1)
  1. RAPAFLO [Suspect]
     Indication: INCONTINENCE
     Dosage: 1 CAPSULE, DAILY, ORAL
     Route: 048
     Dates: start: 20101005

REACTIONS (5)
  - EYE PAIN [None]
  - FATIGUE [None]
  - RETROGRADE EJACULATION [None]
  - DIARRHOEA [None]
  - CONDITION AGGRAVATED [None]
